FAERS Safety Report 8861324 (Version 1)
Quarter: 2012Q4

REPORT INFORMATION
  Report Type: 
  Country: US (occurrence: US)
  Receive Date: 20121026
  Receipt Date: 20121026
  Transmission Date: 20130627
  Serious: No
  Sender: FDA-Public Use
  Company Number: US-PFIZER INC-2012266075

PATIENT
  Age: 62 Year
  Sex: Female

DRUGS (6)
  1. ALTACE [Suspect]
     Dosage: UNK
  2. CODEINE PHOSPHATE [Suspect]
     Dosage: UNK
  3. TIAZAC [Suspect]
     Dosage: UNK
  4. NORVASC [Suspect]
     Dosage: UNK
  5. LIPITOR [Suspect]
     Dosage: UNK
  6. PENICILLIN G BENZATHINE [Suspect]
     Dosage: UNK

REACTIONS (1)
  - Drug hypersensitivity [Unknown]
